FAERS Safety Report 22286672 (Version 2)
Quarter: 2023Q2

REPORT INFORMATION
  Report Type: Report from Study
  Country: US (occurrence: US)
  Receive Date: 20230505
  Receipt Date: 20230517
  Transmission Date: 20230721
  Serious: No
  Sender: FDA-Public Use
  Company Number: US-002147023-NVSC2023US099935

PATIENT
  Sex: Female

DRUGS (1)
  1. ENTRESTO [Suspect]
     Active Substance: SACUBITRIL\VALSARTAN
     Indication: Product used for unknown indication
     Route: 048

REACTIONS (7)
  - Pain [Unknown]
  - Skin disorder [Unknown]
  - Blood urine [Unknown]
  - Dysuria [Unknown]
  - Hypoacusis [Unknown]
  - Fatigue [Unknown]
  - Hypersensitivity [Unknown]
